FAERS Safety Report 18910627 (Version 1)
Quarter: 2021Q1

REPORT INFORMATION
  Report Type: Spontaneous
  Country: US (occurrence: US)
  Receive Date: 20210218
  Receipt Date: 20210218
  Transmission Date: 20210420
  Serious: No
  Sender: FDA-Public Use
  Company Number: US-ALVOGEN-2019-ALVOGEN-099189

PATIENT

DRUGS (14)
  1. TETRACYCLINE HYDROCHLORIDE. [Suspect]
     Active Substance: TETRACYCLINE HYDROCHLORIDE
     Indication: PRODUCT USED FOR UNKNOWN INDICATION
  2. KEFLEX [Suspect]
     Active Substance: CEPHALEXIN
     Indication: PRODUCT USED FOR UNKNOWN INDICATION
  3. PERCOCET [Suspect]
     Active Substance: ACETAMINOPHEN\OXYCODONE HYDROCHLORIDE
     Indication: PRODUCT USED FOR UNKNOWN INDICATION
  4. ACETYLSALICYLIC ACID/OXYCODONE HYDROCHLORIDE [Suspect]
     Active Substance: ASPIRIN\OXYCODONE HYDROCHLORIDE
     Indication: PRODUCT USED FOR UNKNOWN INDICATION
  5. REFLEX [Suspect]
     Active Substance: MIRTAZAPINE
     Indication: PRODUCT USED FOR UNKNOWN INDICATION
  6. TRAMADOL. [Suspect]
     Active Substance: TRAMADOL
     Indication: PRODUCT USED FOR UNKNOWN INDICATION
  7. CECLOR [Suspect]
     Active Substance: CEFACLOR
     Indication: PRODUCT USED FOR UNKNOWN INDICATION
  8. CIPRO [Suspect]
     Active Substance: CIPROFLOXACIN HYDROCHLORIDE
     Indication: PRODUCT USED FOR UNKNOWN INDICATION
  9. OXYCODONE [Suspect]
     Active Substance: OXYCODONE
     Indication: PRODUCT USED FOR UNKNOWN INDICATION
  10. VICODIN [Suspect]
     Active Substance: ACETAMINOPHEN\HYDROCODONE BITARTRATE
     Indication: PRODUCT USED FOR UNKNOWN INDICATION
  11. OXYCONTIN [Suspect]
     Active Substance: OXYCODONE HYDROCHLORIDE
     Indication: PRODUCT USED FOR UNKNOWN INDICATION
  12. TALWIN [Suspect]
     Active Substance: PENTAZOCINE LACTATE
     Indication: PRODUCT USED FOR UNKNOWN INDICATION
  13. CODEINE [Suspect]
     Active Substance: CODEINE
     Indication: PRODUCT USED FOR UNKNOWN INDICATION
  14. FLU [Suspect]
     Active Substance: INFLUENZA VIRUS VACCINE
     Indication: PRODUCT USED FOR UNKNOWN INDICATION

REACTIONS (7)
  - Drug hypersensitivity [Unknown]
  - Eye swelling [Unknown]
  - Swollen tongue [Unknown]
  - Throat tightness [Unknown]
  - Chest discomfort [Unknown]
  - Dyspnoea [Unknown]
  - Urticaria [Unknown]
